FAERS Safety Report 18887412 (Version 3)
Quarter: 2021Q2

REPORT INFORMATION
  Report Type: Spontaneous
  Country: US (occurrence: US)
  Receive Date: 20210212
  Receipt Date: 20210416
  Transmission Date: 20210717
  Serious: Yes (Hospitalization)
  Sender: FDA-Public Use
  Company Number: US-ASTRAZENECA-2021A035336

PATIENT
  Age: 27857 Day
  Sex: Female

DRUGS (2)
  1. BEVESPI AEROSPHERE [Suspect]
     Active Substance: FORMOTEROL FUMARATE\GLYCOPYRROLATE
     Indication: EMPHYSEMA
     Dosage: TWO PUFFS, 3 TIMES A DAY
     Route: 055
  2. BREZTRI AEROSPHERE [Suspect]
     Active Substance: BUDESONIDE\FORMOTEROL\GLYCOPYRRONIUM
     Indication: EMPHYSEMA
     Dosage: 160 MCG OF 9 MCG OF 4.8 MCG 2 PUFFS TWICE A DAY
     Route: 055

REACTIONS (5)
  - Emphysema [Recovered/Resolved]
  - Drug delivery system issue [Unknown]
  - Intentional device use issue [Recovered/Resolved]
  - Oxygen saturation decreased [Unknown]
  - Device ineffective [Not Recovered/Not Resolved]

NARRATIVE: CASE EVENT DATE: 20201221
